FAERS Safety Report 13472151 (Version 1)
Quarter: 2017Q2

REPORT INFORMATION
  Report Type: Spontaneous
  Country: US (occurrence: US)
  Receive Date: 20170422
  Receipt Date: 20170422
  Transmission Date: 20170830
  Serious: Yes (Disabling)
  Sender: FDA-Public Use
  Company Number: None

PATIENT
  Age: 35 Year
  Sex: Male
  Weight: 77.4 kg

DRUGS (1)
  1. FLONASE ALLERGY RELIEF [Suspect]
     Active Substance: FLUTICASONE PROPIONATE
     Indication: NASAL CONGESTION
     Dosage: 2 SPRAY(S) RESPIRATORY (INHALATION)
     Route: 055
     Dates: start: 20170420, end: 20170421

REACTIONS (2)
  - Initial insomnia [None]
  - Middle insomnia [None]

NARRATIVE: CASE EVENT DATE: 20170421
